FAERS Safety Report 23332357 (Version 1)
Quarter: 2023Q4

REPORT INFORMATION
  Report Type: Report from Study
  Country: TH (occurrence: None)
  Receive Date: 20231222
  Receipt Date: 20231222
  Transmission Date: 20240109
  Serious: Yes (Death)
  Sender: FDA-Public Use
  Company Number: 2023A290098

PATIENT
  Age: 20407 Day
  Sex: Male

DRUGS (1)
  1. TAGRISSO [Suspect]
     Active Substance: OSIMERTINIB
     Indication: HER2 mutant non-small cell lung cancer
     Route: 048
     Dates: start: 20200319, end: 20231214

REACTIONS (1)
  - Death [Fatal]

NARRATIVE: CASE EVENT DATE: 20231214
